FAERS Safety Report 9852286 (Version 1)
Quarter: 2014Q1

REPORT INFORMATION
  Report Type: Spontaneous
  Country: US (occurrence: US)
  Receive Date: 20140129
  Receipt Date: 20140129
  Transmission Date: 20141002
  Serious: No
  Sender: FDA-Public Use
  Company Number: US-009507513-1401USA013235

PATIENT
  Sex: Female

DRUGS (1)
  1. LIPTRUZET [Suspect]
     Indication: BLOOD CHOLESTEROL DECREASED
     Dosage: 1 DF, QD
     Route: 048
     Dates: start: 201306

REACTIONS (1)
  - Blood cholesterol decreased [Unknown]
